FAERS Safety Report 5527773-9 (Version None)
Quarter: 2007Q4

REPORT INFORMATION
  Report Type: 
  Country: None (occurrence: None)
  Receive Date: 20071128
  Receipt Date: 20071127
  Transmission Date: 20080405
  Serious: Yes (Other)
  Sender: FDA-Public Use
  Company Number: A0695941A

PATIENT
  Age: 52 Year
  Sex: Female

DRUGS (1)
  1. ALLI [Suspect]
     Indication: WEIGHT LOSS DIET
     Route: 048
     Dates: start: 20070615

REACTIONS (3)
  - FALL [None]
  - IMPAIRED HEALING [None]
  - PELVIC FRACTURE [None]
